FAERS Safety Report 25812336 (Version 2)
Quarter: 2025Q4

REPORT INFORMATION
  Report Type: Spontaneous
  Country: JP (occurrence: JP)
  Receive Date: 20250917
  Receipt Date: 20251117
  Transmission Date: 20260119
  Serious: Yes (Hospitalization)
  Sender: ROCHE
  Company Number: JP-CHUGAI-2025029433

PATIENT
  Age: 73 Year
  Sex: Female
  Weight: 59 kg

DRUGS (12)
  1. POLIVY [Suspect]
     Active Substance: POLATUZUMAB VEDOTIN-PIIQ
     Indication: Diffuse large B-cell lymphoma
     Dosage: 90 MILLIGRAM, ONCE/3WEEKS
     Route: 042
     Dates: start: 20250704
  2. ONCOVIN [Suspect]
     Active Substance: VINCRISTINE SULFATE
     Indication: Diffuse large B-cell lymphoma
     Route: 042
     Dates: start: 20250612, end: 20250617
  3. RITUXIMAB [Concomitant]
     Active Substance: RITUXIMAB
     Indication: Diffuse large B-cell lymphoma
     Route: 042
     Dates: start: 20250703
  4. DOXORUBICIN HYDROCHLORIDE [Concomitant]
     Active Substance: DOXORUBICIN HYDROCHLORIDE
     Indication: Diffuse large B-cell lymphoma
     Route: 042
     Dates: start: 20250704
  5. CYCLOPHOSPHAMIDE [Concomitant]
     Active Substance: CYCLOPHOSPHAMIDE
     Indication: Diffuse large B-cell lymphoma
     Route: 042
     Dates: start: 20250704
  6. PREDONINE [Concomitant]
     Active Substance: PREDNISOLONE
     Indication: Diffuse large B-cell lymphoma
     Route: 048
     Dates: start: 20250704
  7. FAMOTIDINE [Concomitant]
     Active Substance: FAMOTIDINE
  8. REBAMIPIDE [Concomitant]
     Active Substance: REBAMIPIDE
     Dates: start: 20250612
  9. MIYA-BM [Concomitant]
     Active Substance: CLOSTRIDIUM BUTYRICUM SPORES STRAIN M-55
     Indication: Constipation
     Route: 048
  10. MAGNESIUM OXIDE [Concomitant]
     Active Substance: MAGNESIUM OXIDE
     Indication: Constipation
     Route: 048
     Dates: start: 20250612
  11. SULFAMETHOXAZOLE\TRIMETHOPRIM [Concomitant]
     Active Substance: SULFAMETHOXAZOLE\TRIMETHOPRIM
     Route: 048
     Dates: start: 20250613
  12. TU-100 [Concomitant]
     Active Substance: ASIAN GINSENG\GINGER\ZANTHOXYLUM PIPERITUM FRUIT PULP
     Indication: Constipation
     Route: 048
     Dates: start: 20250507

REACTIONS (1)
  - Small intestinal obstruction [Recovered/Resolved]

NARRATIVE: CASE EVENT DATE: 20250712
